FAERS Safety Report 22541711 (Version 1)
Quarter: 2023Q2

REPORT INFORMATION
  Report Type: Spontaneous
  Country: GB (occurrence: GB)
  Receive Date: 20230609
  Receipt Date: 20230609
  Transmission Date: 20230721
  Serious: Yes (Life-Threatening)
  Sender: FDA-Public Use
  Company Number: GB-MHRA-MED-202305301254467180-CBVYJ

PATIENT
  Age: 86 Year
  Sex: Male
  Weight: 82 kg

DRUGS (12)
  1. CIPROFLOXACIN [Suspect]
     Active Substance: CIPROFLOXACIN
     Dates: start: 20230507, end: 20230512
  2. ASPIRIN [Concomitant]
     Active Substance: ASPIRIN
  3. ATENOLOL [Concomitant]
     Active Substance: ATENOLOL
  4. AMOXICILLIN\CLAVULANIC ACID [Concomitant]
     Active Substance: AMOXICILLIN\CLAVULANIC ACID
  5. DOXAZOSIN [Concomitant]
     Active Substance: DOXAZOSIN MESYLATE
  6. FINASTERIDE [Concomitant]
     Active Substance: FINASTERIDE
  7. GLICLAZIDE [Concomitant]
     Active Substance: GLICLAZIDE
  8. LANSOPRAZOLE [Concomitant]
     Active Substance: LANSOPRAZOLE
  9. PERINDOPRIL [Concomitant]
     Active Substance: PERINDOPRIL
  10. SENNA [Concomitant]
     Active Substance: SENNA LEAF\SENNOSIDES\SENNOSIDES A AND B
  11. SIMVASTATIN [Concomitant]
     Active Substance: SIMVASTATIN
  12. TEMOCILLIN [Concomitant]
     Active Substance: TEMOCILLIN

REACTIONS (1)
  - Seizure [Recovered/Resolved]

NARRATIVE: CASE EVENT DATE: 20230512
